FAERS Safety Report 8628308 (Version 2)
Quarter: 2012Q4

REPORT INFORMATION
  Report Type: Report from Study
  Country: JP (occurrence: JP)
  Receive Date: 20120621
  Receipt Date: 20121113
  Transmission Date: 20130627
  Serious: Yes (Death, Other)
  Sender: FDA-Public Use
  Company Number: PHHY2012JP052200

PATIENT
  Age: 84 Year
  Sex: Male

DRUGS (6)
  1. AMN107 [Suspect]
     Indication: CHRONIC MYELOID LEUKAEMIA
     Dosage: 200 mg, daily
     Route: 048
     Dates: start: 20100709, end: 20110218
  2. AMN107 [Suspect]
     Dosage: 400 mg, daily
     Route: 048
     Dates: start: 20110902, end: 20120517
  3. AMN107 [Suspect]
     Dosage: 800 mg, daily
     Route: 048
     Dates: start: 20120518
  4. TAKEPRON [Concomitant]
     Indication: PROPHYLAXIS
     Dates: start: 20100910
  5. GASMOTIN [Concomitant]
     Indication: PROPHYLAXIS
     Dates: start: 20100910
  6. MUCOSTA [Concomitant]
     Indication: PROPHYLAXIS
     Dates: start: 20100910

REACTIONS (4)
  - Chronic myeloid leukaemia [Fatal]
  - Platelet count decreased [Not Recovered/Not Resolved]
  - Anaemia [Not Recovered/Not Resolved]
  - Drug ineffective [Unknown]
